FAERS Safety Report 16715934 (Version 1)
Quarter: 2019Q3

REPORT INFORMATION
  Report Type: Report from Study
  Country: US (occurrence: US)
  Receive Date: 20190819
  Receipt Date: 20190819
  Transmission Date: 20191005
  Serious: Yes (Hospitalization)
  Sender: FDA-Public Use
  Company Number: US-ROCHE-2372621

PATIENT
  Sex: Male

DRUGS (3)
  1. ACTEMRA [Suspect]
     Active Substance: TOCILIZUMAB
     Indication: RHEUMATOID ARTHRITIS
     Dosage: THERAPY DETAIL:UNKNOWN
     Route: 058
  2. ACTEMRA [Suspect]
     Active Substance: TOCILIZUMAB
     Indication: PROCEDURAL HAEMORRHAGE
  3. ACTEMRA [Suspect]
     Active Substance: TOCILIZUMAB
     Indication: POST PROCEDURAL HAEMATOMA

REACTIONS (2)
  - Fall [Unknown]
  - Subdural haematoma [Unknown]
